FAERS Safety Report 19369419 (Version 1)
Quarter: 2021Q2

REPORT INFORMATION
  Report Type: Spontaneous
  Country: US (occurrence: US)
  Receive Date: 20210602
  Receipt Date: 20210602
  Transmission Date: 20210717
  Serious: No
  Sender: FDA-Public Use
  Company Number: US-ROCHE-2764689

PATIENT
  Age: 44 Year
  Sex: Female
  Weight: 61.29 kg

DRUGS (7)
  1. OCREVUS [Suspect]
     Active Substance: OCRELIZUMAB
     Indication: MULTIPLE SCLEROSIS
     Dosage: ON 12/OCT/2020, SHE RECEIVED HER SECOND OCRELIZUMAB INFUSION
     Route: 042
     Dates: start: 202009
  2. VALIUM [Suspect]
     Active Substance: DIAZEPAM
     Indication: ANXIETY
  3. VALIUM [Suspect]
     Active Substance: DIAZEPAM
     Indication: HYPOPNOEA
     Route: 042
  4. REBIF [Concomitant]
     Active Substance: INTERFERON BETA-1A
  5. VALIUM [Suspect]
     Active Substance: DIAZEPAM
     Indication: HYPOPNOEA
     Route: 048
     Dates: start: 202010
  6. COPAXONE [Concomitant]
     Active Substance: GLATIRAMER ACETATE
  7. SOLU?MEDROL [Concomitant]
     Active Substance: METHYLPREDNISOLONE SODIUM SUCCINATE
     Indication: HYPOPNOEA
     Dates: start: 20201012

REACTIONS (9)
  - Nasal pruritus [Recovered/Resolved]
  - Fatigue [Not Recovered/Not Resolved]
  - Anxiety [Unknown]
  - Mobility decreased [Not Recovered/Not Resolved]
  - Peroneal nerve palsy [Unknown]
  - Hypopnoea [Recovered/Resolved]
  - Throat irritation [Recovered/Resolved]
  - Urticaria [Recovered/Resolved]
  - Throat tightness [Recovered/Resolved]

NARRATIVE: CASE EVENT DATE: 202009
